FAERS Safety Report 7549159-8 (Version None)
Quarter: 2011Q2

REPORT INFORMATION
  Report Type: 
  Country: None (occurrence: None)
  Receive Date: 20110615
  Receipt Date: 20110601
  Transmission Date: 20111010
  Serious: Yes (Other)
  Sender: FDA-Public Use
  Company Number: PHHY2011AU48091

PATIENT
  Sex: Female

DRUGS (9)
  1. SANDOSTATIN LAR [Suspect]
     Indication: PANCREATIC NEUROENDOCRINE TUMOUR METASTATIC
     Dosage: 40 MG, QW4
     Dates: start: 20101201
  2. CREON [Concomitant]
  3. ROSUVASTATIN [Concomitant]
  4. SANDOSTATIN LAR [Suspect]
     Dosage: 60 MG, QW4
     Dates: start: 20110101, end: 20110301
  5. LANTUS [Concomitant]
  6. SCOPOLAMINE [Concomitant]
  7. SANDOSTATIN [Suspect]
     Indication: PANCREATIC NEUROENDOCRINE TUMOUR METASTATIC
     Dosage: 100 UG, QID
     Dates: start: 20110201
  8. CIMETIDINE [Concomitant]
  9. AMITRIPTYLINE HCL [Concomitant]

REACTIONS (3)
  - DRUG INEFFECTIVE [None]
  - NEPHROLITHIASIS [None]
  - RENAL CYST [None]
